FAERS Safety Report 7261825-0 (Version None)
Quarter: 2011Q1

REPORT INFORMATION
  Report Type: 
  Country: None (occurrence: None)
  Receive Date: 20110130
  Receipt Date: 20101209
  Transmission Date: 20110831
  Serious: Yes (Hospitalization)
  Sender: FDA-Public Use
  Company Number: US-ABBOTT-10P-163-0690900-00

PATIENT
  Sex: Male

DRUGS (6)
  1. HUMIRA [Suspect]
     Dates: start: 20101208
  2. IMURAN [Concomitant]
     Indication: CROHN'S DISEASE
     Dosage: TO TAKE FOR 1 MONTH
     Dates: start: 20101208
  3. HUMIRA [Suspect]
     Indication: CROHN'S DISEASE
     Dosage: 1ST LOADING DOSE, ONCE
     Route: 058
     Dates: start: 20100707, end: 20100707
  4. HUMIRA [Suspect]
     Dosage: 2ND LOADING DOSE, ONCE
     Route: 058
  5. METRONIDAZOLE [Concomitant]
     Indication: PRODUCT USED FOR UNKNOWN INDICATION
  6. HUMIRA [Suspect]
     Route: 058
     Dates: end: 20101208

REACTIONS (7)
  - DECREASED APPETITE [None]
  - WEIGHT DECREASED [None]
  - VOMITING [None]
  - NAUSEA [None]
  - ABDOMINAL PAIN [None]
  - DIARRHOEA [None]
  - ABSCESS [None]
